FAERS Safety Report 6181834 (Version 20)
Quarter: 2013Q4

REPORT INFORMATION
  Report Type: Spontaneous
  Country: US (occurrence: US)
  Receive Date: 20061208
  Receipt Date: 20131023
  Transmission Date: 20140711
  Serious: Yes (Hospitalization, Other)
  Sender: FDA-Public Use
  Company Number: PHEH2006US14747

PATIENT
  Sex: Female
  Weight: 96.15 kg

DRUGS (40)
  1. ZOMETA [Suspect]
     Route: 042
     Dates: start: 2004
  2. CHEMOTHERAPEUTICS NOS [Suspect]
     Indication: BREAST CANCER METASTATIC
  3. LISINOPRIL [Concomitant]
  4. NADOLOL [Concomitant]
  5. PAROXETINE [Concomitant]
  6. FEMARA [Concomitant]
  7. TEMAZEPAM [Concomitant]
  8. FERROUS SULFATE [Concomitant]
  9. CALCIUM [Concomitant]
  10. VITAMIN B6 [Concomitant]
  11. GLUCOSAMINE [Concomitant]
  12. AROMASIN [Concomitant]
  13. PREMARIN [Concomitant]
     Dosage: 6.25 G, QD
  14. TRIAMTERENE [Concomitant]
     Dosage: 37.5 MG, QD
  15. LIPITOR [Concomitant]
     Dosage: 10 MG, 1 A DAY
  16. AMBIEN [Concomitant]
     Dosage: 25 MG,  1 A DAY
  17. PAXIL [Concomitant]
     Dosage: 10 MG, QD
  18. LORAZEPAM [Concomitant]
     Dosage: 0.5 MG, QD
     Dates: start: 2006
  19. VALTREX [Concomitant]
     Dosage: 500 MG, QD
     Dates: start: 200706
  20. PRILOSEC [Concomitant]
     Dosage: 20 MG, QD
     Route: 048
  21. DECADRON [Concomitant]
     Dosage: 4 MG, Q12H
     Route: 048
  22. REGLAN                                  /USA/ [Concomitant]
     Dosage: 5 MG, QHS
     Route: 048
  23. TYLENOL EXTRA-STRENGTH [Concomitant]
     Dosage: 650 MG, Q4H
     Route: 048
  24. MILK OF MAGNESIA [Concomitant]
  25. PRINIVIL [Concomitant]
     Dosage: 20 MG, QD
     Route: 048
  26. DILAUDID [Concomitant]
     Dosage: 2 MG, Q3H
     Route: 048
  27. ZOFRAN [Concomitant]
     Dosage: 8 MG, TID
     Route: 048
  28. DEXAMETHASONE [Concomitant]
     Dosage: 4 MG, BID
  29. HYDROMORPHONE [Concomitant]
     Dosage: 2 MG, Q3H
     Route: 048
  30. OXYCONTIN [Concomitant]
  31. XELODA [Concomitant]
     Dosage: 2.5 MG, QD
     Route: 048
  32. LEVOFLOXACIN [Concomitant]
     Dosage: 500 MG, QD
  33. OLANZAPINE [Concomitant]
     Dosage: 2.5 MG, QD
  34. VICODIN [Concomitant]
  35. PERCOCET [Concomitant]
     Dosage: 1 DF, Q6H
     Route: 048
  36. TRAVATAN [Concomitant]
     Dosage: 1 DRP, QD
     Route: 047
  37. CEFAZOLIN [Concomitant]
  38. BACITRACIN [Concomitant]
     Dosage: UNK UKN, TID
     Route: 061
  39. LATANOPROST [Concomitant]
     Dosage: 1 DRP, QHS, BOTH EYES
     Route: 047
  40. AMPICILLIN [Concomitant]
     Dosage: 500 MG, Q6H
     Route: 042

REACTIONS (106)
  - Muscle disorder [Unknown]
  - Urinary tract infection [Unknown]
  - Ligament disorder [Unknown]
  - Insomnia [Unknown]
  - Fungal paronychia [Unknown]
  - Postoperative wound infection [Unknown]
  - Device related infection [Unknown]
  - Bloody discharge [Unknown]
  - Immunosuppression [Unknown]
  - Secretion discharge [Unknown]
  - Nausea [Unknown]
  - Encephalopathy [Unknown]
  - Pathological fracture [Unknown]
  - Neutropenia [Unknown]
  - Radiculopathy [Unknown]
  - Spinal osteoarthritis [Unknown]
  - Facet joint syndrome [Unknown]
  - Dyslipidaemia [Unknown]
  - Cerebral small vessel ischaemic disease [Unknown]
  - Alopecia [Unknown]
  - Sepsis [Unknown]
  - Vertebral foraminal stenosis [Unknown]
  - Mass [Unknown]
  - Stomatitis [Unknown]
  - Dehydration [Unknown]
  - Renal disorder [Unknown]
  - Vascular calcification [Unknown]
  - Pulmonary calcification [Unknown]
  - Pulmonary granuloma [Unknown]
  - Osteosclerosis [Unknown]
  - Bone lesion [Unknown]
  - Arthralgia [Unknown]
  - Oedema peripheral [Unknown]
  - Pruritus [Unknown]
  - Swollen tongue [Unknown]
  - Local swelling [Unknown]
  - Stevens-Johnson syndrome [Unknown]
  - Breast cancer metastatic [Unknown]
  - Osteonecrosis of jaw [Unknown]
  - General physical health deterioration [Unknown]
  - Pain [Unknown]
  - Anxiety [Unknown]
  - Decreased interest [Unknown]
  - Lymphadenitis [Unknown]
  - Erythema [Unknown]
  - Hypertension [Unknown]
  - Hyperlipidaemia [Unknown]
  - Rheumatoid arthritis [Unknown]
  - Osteopenia [Unknown]
  - Lymphadenopathy [Unknown]
  - Metastases to bone [Unknown]
  - Metastases to liver [Unknown]
  - Central nervous system lesion [Unknown]
  - Cholelithiasis [Unknown]
  - Hepatic lesion [Unknown]
  - Renal cyst [Unknown]
  - Type 2 diabetes mellitus [Unknown]
  - Obesity [Unknown]
  - Cholangiocarcinoma [Unknown]
  - Biliary dilatation [Unknown]
  - Gallbladder disorder [Unknown]
  - Second primary malignancy [Unknown]
  - Exposed bone in jaw [Unknown]
  - Fistula discharge [Unknown]
  - Hypoaesthesia [Unknown]
  - Gingival disorder [Unknown]
  - Mouth ulceration [Unknown]
  - Dry mouth [Unknown]
  - Lung hyperinflation [Unknown]
  - Chronic obstructive pulmonary disease [Unknown]
  - Osteoporosis [Unknown]
  - Herpes simplex [Unknown]
  - Taeniasis [Unknown]
  - Hepatic steatosis [Unknown]
  - Pulmonary mass [Unknown]
  - Swelling face [Unknown]
  - Intervertebral disc protrusion [Unknown]
  - Arthropathy [Unknown]
  - Back pain [Unknown]
  - Arteriosclerosis coronary artery [Unknown]
  - Vomiting [Unknown]
  - Spinal compression fracture [Unknown]
  - Spinal column stenosis [Unknown]
  - Paranoia [Unknown]
  - Urinary incontinence [Unknown]
  - Exostosis [Unknown]
  - Metastases to meninges [Unknown]
  - Gait disturbance [Unknown]
  - Bladder dysfunction [Unknown]
  - Delirium [Unknown]
  - Paraparesis [Unknown]
  - Mental status changes [Unknown]
  - Faecal incontinence [Unknown]
  - Weight decreased [Unknown]
  - Constipation [Unknown]
  - Dyspnoea exertional [Unknown]
  - Headache [Unknown]
  - Osteomyelitis [Unknown]
  - Abscess jaw [Unknown]
  - Bone fistula [Unknown]
  - Onychomycosis [Unknown]
  - Ingrowing nail [Unknown]
  - Abnormal behaviour [Unknown]
  - Atelectasis [Unknown]
  - Symbolic dysfunction [Unknown]
  - Glaucoma [Unknown]
